FAERS Safety Report 6578096-0 (Version None)
Quarter: 2010Q1

REPORT INFORMATION
  Report Type: 
  Country: None (occurrence: None)
  Receive Date: 20100211
  Receipt Date: 20100202
  Transmission Date: 20100710
  Serious: Yes (Death, Hospitalization)
  Sender: FDA-Public Use
  Company Number: ES-PFIZER INC-2009248451

PATIENT
  Age: 61 Year
  Sex: Male

DRUGS (6)
  1. ECALTA [Suspect]
     Indication: ASPERGILLOSIS
     Dosage: 200 MG, 1X/DAY
     Route: 042
     Dates: start: 20090616, end: 20090601
  2. ECALTA [Suspect]
     Dosage: 100 MG, 1X/DAY
     Route: 042
     Dates: start: 20090601, end: 20090618
  3. VANCOMYCIN [Concomitant]
     Dosage: 0.5 G, EVERY 6 HOURS
     Route: 042
     Dates: start: 20090614
  4. IMIPENEM [Concomitant]
     Dosage: 0.5 G, EVERY 6 HOURS
     Route: 042
     Dates: start: 20090614
  5. SOLTRIM [Concomitant]
     Dosage: 2 VIALS EVERY 6 HOURS
     Route: 042
     Dates: start: 20090615
  6. GANCICLOVIR [Concomitant]
     Dosage: 5 MG/KG, UNK
     Route: 042
     Dates: start: 20090615

REACTIONS (2)
  - HEPATIC FAILURE [None]
  - LUNG INFECTION [None]
